FAERS Safety Report 9689579 (Version 1)
Quarter: 2013Q4

REPORT INFORMATION
  Report Type: Report from Study
  Country: US (occurrence: US)
  Receive Date: 20131115
  Receipt Date: 20131115
  Transmission Date: 20140711
  Serious: Yes (Hospitalization)
  Sender: FDA-Public Use
  Company Number: US-ROCHE-1300020

PATIENT
  Sex: Female

DRUGS (9)
  1. PEG-INTERFERON ALFA 2A [Suspect]
     Indication: HEPATITIS C
     Route: 058
     Dates: start: 20131012, end: 20131031
  2. RIBAVIRIN [Suspect]
     Indication: HEPATITIS C
     Route: 048
     Dates: start: 20131012, end: 20131031
  3. INCIVEK [Suspect]
     Indication: HEPATITIS C
     Route: 048
     Dates: start: 20131012, end: 20131031
  4. METFORMIN [Concomitant]
     Indication: DIABETES MELLITUS
     Route: 048
  5. LANTUS [Concomitant]
  6. LOSARTAN/HCTZ [Concomitant]
     Indication: HYPERTENSION
     Dosage: DOSE: 100/25 MG
     Route: 048
  7. OXYCODONE [Concomitant]
     Indication: PAIN
     Route: 048
  8. ZANTAC [Concomitant]
     Route: 048
  9. CYCLOBENZAPRINE [Concomitant]
     Indication: FIBROMYALGIA
     Route: 048

REACTIONS (13)
  - Asthenia [Not Recovered/Not Resolved]
  - Pyrexia [Unknown]
  - Syncope [Recovered/Resolved]
  - Tremor [Recovered/Resolved]
  - Chills [Recovered/Resolved]
  - Full blood count decreased [Recovering/Resolving]
  - Pruritus generalised [Recovered/Resolved]
  - Headache [Unknown]
  - Rash [Unknown]
  - Dysphonia [Not Recovered/Not Resolved]
  - Vision blurred [Not Recovered/Not Resolved]
  - Eye swelling [Not Recovered/Not Resolved]
  - Eye pain [Not Recovered/Not Resolved]
